FAERS Safety Report 13554548 (Version 1)
Quarter: 2017Q2

REPORT INFORMATION
  Report Type: Spontaneous
  Country: US (occurrence: US)
  Receive Date: 20170517
  Receipt Date: 20170517
  Transmission Date: 20170830
  Serious: No
  Sender: FDA-Public Use
  Company Number: US-SEBELA IRELAND LIMITED-2017SEB00033

PATIENT
  Sex: Female

DRUGS (1)
  1. RIDAURA [Suspect]
     Active Substance: AURANOFIN

REACTIONS (3)
  - Unevaluable event [Unknown]
  - Hypersensitivity [Unknown]
  - Swelling face [Unknown]
